FAERS Safety Report 9686792 (Version 2)
Quarter: 2013Q4

REPORT INFORMATION
  Report Type: Report from Study
  Country: GB (occurrence: GB)
  Receive Date: 20131113
  Receipt Date: 20131221
  Transmission Date: 20140711
  Serious: Yes (Hospitalization)
  Sender: FDA-Public Use
  Company Number: PHHO2013GB014519

PATIENT
  Sex: 0

DRUGS (8)
  1. SOM230 [Suspect]
     Indication: NELSON^S SYNDROME
     Dosage: 600 UG, UNK
     Route: 058
     Dates: start: 20131023, end: 20131031
  2. SOM230 [Suspect]
     Dosage: 600 UG, UNK
     Route: 058
     Dates: start: 20131104
  3. BLINDED NO TREATMENT RECEIVED [Suspect]
     Indication: NELSON^S SYNDROME
     Dosage: CODE NOT BROKEN
     Route: 030
     Dates: start: 20131023, end: 20131101
  4. BLINDED PLACEBO [Suspect]
     Indication: NELSON^S SYNDROME
     Dosage: CODE NOT BROKEN
     Route: 030
     Dates: start: 20131023, end: 20131101
  5. BLINDED SOM230 [Suspect]
     Indication: NELSON^S SYNDROME
     Dosage: CODE NOT BROKEN
     Route: 030
     Dates: start: 20131023, end: 20131101
  6. BLINDED NO TREATMENT RECEIVED [Suspect]
     Dosage: CODE NOT BROKEN
     Route: 030
     Dates: start: 20131104
  7. BLINDED PLACEBO [Suspect]
     Dosage: CODE NOT BROKEN
     Route: 030
     Dates: start: 20131104
  8. BLINDED SOM230 [Suspect]
     Dosage: CODE NOT BROKEN
     Route: 030
     Dates: start: 20131104

REACTIONS (2)
  - Blood creatinine increased [Recovered/Resolved]
  - Nausea [Recovered/Resolved]
